FAERS Safety Report 10170717 (Version 2)
Quarter: 2014Q2

REPORT INFORMATION
  Report Type: Report from Study
  Country: CA (occurrence: CA)
  Receive Date: 20140514
  Receipt Date: 20140514
  Transmission Date: 20141212
  Serious: Yes (Other)
  Sender: FDA-Public Use
  Company Number: CA-BIOGENIDEC-2014BI028485

PATIENT
  Age: 33 Year
  Sex: Female

DRUGS (1)
  1. TECFIDERA [Suspect]
     Indication: MULTIPLE SCLEROSIS
     Route: 048
     Dates: start: 20130821

REACTIONS (6)
  - Deep vein thrombosis [Unknown]
  - Limb injury [Unknown]
  - Limb injury [Unknown]
  - Ligament injury [Unknown]
  - Contusion [Unknown]
  - Arthralgia [Unknown]
